FAERS Safety Report 4543026-X (Version None)
Quarter: 2004Q4

REPORT INFORMATION
  Report Type: 
  Country: None (occurrence: None)
  Receive Date: 20041223
  Receipt Date: 20041210
  Transmission Date: 20050328
  Serious: Yes (Other)
  Sender: FDA-Public Use
  Company Number: 2004-120325-NL

PATIENT
  Age: 66 Year
  Sex: Male

DRUGS (2)
  1. TICE BCG [Suspect]
     Indication: BLADDER CANCER RECURRENT
     Dosage: CPU INTRAVESICAL, 2 INSTILLATIONS
     Route: 043
     Dates: start: 20040123, end: 20040130
  2. TICE BCG [Suspect]
     Indication: BLADDER CANCER RECURRENT
     Dosage: 1 DF WEEKLY INTRAVESICAL, 2 INSTILLATIONS
     Route: 043
     Dates: start: 20040827, end: 20040903

REACTIONS (6)
  - BOVINE TUBERCULOSIS [None]
  - CYSTITIS [None]
  - HERPES SIMPLEX [None]
  - INFLUENZA LIKE ILLNESS [None]
  - PROSTATITIS [None]
  - URINE FLOW DECREASED [None]
